APPROVED DRUG PRODUCT: DAYSEE
Active Ingredient: ETHINYL ESTRADIOL; LEVONORGESTREL
Strength: 0.03MG,0.01MG;0.15MG,N/A
Dosage Form/Route: TABLET;ORAL
Application: A091467 | Product #001 | TE Code: AB
Applicant: LUPIN LTD
Approved: Apr 10, 2013 | RLD: No | RS: No | Type: RX